FAERS Safety Report 4706993-7 (Version None)
Quarter: 2005Q2

REPORT INFORMATION
  Report Type: 
  Country: None (occurrence: None)
  Receive Date: 20050630
  Receipt Date: 20050620
  Transmission Date: 20051028
  Serious: Yes (Death)
  Sender: FDA-Public Use
  Company Number: 2005-DE-02356GD

PATIENT
  Sex: 0

DRUGS (5)
  1. COCAINE (COCAINE) [Suspect]
  2. OXYCODONE (OXYCODONE) [Suspect]
  3. MEPROBAMATE [Suspect]
  4. CARISOPRODOL [Suspect]
  5. MARIJUANA (CANNABIS SATIVA) [Suspect]

REACTIONS (6)
  - ACUTE PULMONARY OEDEMA [None]
  - DRUG ABUSER [None]
  - DRUG INTERACTION [None]
  - DRUG TOXICITY [None]
  - INTENTIONAL MISUSE [None]
  - OVERDOSE [None]
